FAERS Safety Report 16017147 (Version 3)
Quarter: 2020Q2

REPORT INFORMATION
  Report Type: Spontaneous
  Country: US (occurrence: US)
  Receive Date: 20190228
  Receipt Date: 20200414
  Transmission Date: 20200713
  Serious: Yes (Other)
  Sender: FDA-Public Use
  Company Number: US-PFIZER INC-2019085353

PATIENT
  Age: 70 Year
  Sex: Female

DRUGS (1)
  1. PREMARIN [Suspect]
     Active Substance: ESTROGENS, CONJUGATED
     Dosage: 1.25 MG, UNK
     Dates: start: 1975

REACTIONS (12)
  - Weight decreased [Unknown]
  - Weight increased [Unknown]
  - Shock [Unknown]
  - Pneumonia [Unknown]
  - Type 2 diabetes mellitus [Unknown]
  - Cardiac disorder [Unknown]
  - Decreased immune responsiveness [Unknown]
  - Upper limb fracture [Unknown]
  - Crohn^s disease [Unknown]
  - Fall [Unknown]
  - Hypertension [Unknown]
  - Breast cancer female [Unknown]

NARRATIVE: CASE EVENT DATE: 2018
